FAERS Safety Report 6334698-8 (Version None)
Quarter: 2009Q3

REPORT INFORMATION
  Report Type: 
  Country: None (occurrence: None)
  Receive Date: 20090831
  Receipt Date: 20090820
  Transmission Date: 20100115
  Serious: Yes (Other)
  Sender: FDA-Public Use
  Company Number: FR-PFIZER INC-2009257278

PATIENT
  Age: 86 Year

DRUGS (4)
  1. TAHOR [Suspect]
     Dosage: 10 MG, 1X/DAY
     Route: 048
     Dates: start: 20010101, end: 20090314
  2. SOTALEX [Concomitant]
  3. FLECAINIDE ACETATE [Concomitant]
     Dosage: UNK
  4. LASIX [Concomitant]
     Dosage: UNK

REACTIONS (2)
  - LOSS OF CONTROL OF LEGS [None]
  - MYALGIA [None]
